FAERS Safety Report 17552566 (Version 2)
Quarter: 2020Q2

REPORT INFORMATION
  Report Type: Report from Study
  Country: US (occurrence: US)
  Receive Date: 20200317
  Receipt Date: 20200417
  Transmission Date: 20200713
  Serious: Yes (Hospitalization)
  Sender: FDA-Public Use
  Company Number: US-TEVA-2020-US-1204095

PATIENT
  Sex: Male

DRUGS (4)
  1. DEXAMETHASONE. [Suspect]
     Active Substance: DEXAMETHASONE
     Indication: NEUROCYSTICERCOSIS
     Route: 065
     Dates: start: 20091005, end: 201003
  2. ALBENDAZOLE. [Concomitant]
     Active Substance: ALBENDAZOLE
     Indication: NEUROCYSTICERCOSIS
     Route: 065
     Dates: end: 20100115
  3. METHOTREXATE. [Concomitant]
     Active Substance: METHOTREXATE
     Indication: NEUROCYSTICERCOSIS
     Route: 065
     Dates: start: 20091005, end: 201308
  4. PRAZIQUANTEL. [Concomitant]
     Active Substance: PRAZIQUANTEL
     Indication: NEUROCYSTICERCOSIS
     Route: 065
     Dates: start: 20100330, end: 201007

REACTIONS (4)
  - Osteonecrosis [Unknown]
  - Weight increased [Unknown]
  - Diabetes mellitus [Unknown]
  - Oedema peripheral [Unknown]
